FAERS Safety Report 21209855 (Version 1)
Quarter: 2022Q3

REPORT INFORMATION
  Report Type: Other
  Country: GB (occurrence: GB)
  Receive Date: 20220813
  Receipt Date: 20220813
  Transmission Date: 20221027
  Serious: No
  Sender: FDA-Public Use
  Company Number: GB-MHRA-MED-202208032214412270-ZSDFR

PATIENT
  Sex: Female

DRUGS (1)
  1. SERTRALINE [Suspect]
     Active Substance: SERTRALINE HYDROCHLORIDE
     Indication: Product used for unknown indication
     Dosage: UNK
     Route: 065

REACTIONS (5)
  - Derealisation [Not Recovered/Not Resolved]
  - Amnesia [Recovering/Resolving]
  - Fatigue [Not Recovered/Not Resolved]
  - Abnormal dreams [Not Recovered/Not Resolved]
  - Memory impairment [Not Recovered/Not Resolved]
